FAERS Safety Report 10881827 (Version 1)
Quarter: 2015Q1

REPORT INFORMATION
  Report Type: Spontaneous
  Country: US (occurrence: None)
  Receive Date: 20150226
  Receipt Date: 20150226
  Transmission Date: 20150721
  Serious: Yes (Hospitalization)
  Sender: FDA-Public Use
  Company Number: None

PATIENT
  Age: 59 Year
  Sex: Female

DRUGS (1)
  1. AMPYRA [Suspect]
     Active Substance: DALFAMPRIDINE
     Indication: MULTIPLE SCLEROSIS
     Route: 048
     Dates: start: 201401

REACTIONS (8)
  - Syncope [None]
  - Hypernatraemia [None]
  - Hypokalaemia [None]
  - Electrocardiogram ST segment abnormal [None]
  - Dehydration [None]
  - Presyncope [None]
  - Fall [None]
  - Blood sodium increased [None]

NARRATIVE: CASE EVENT DATE: 20140512
